FAERS Safety Report 26174378 (Version 1)
Quarter: 2025Q4

REPORT INFORMATION
  Report Type: Spontaneous
  Country: US (occurrence: None)
  Receive Date: 20251218
  Receipt Date: 20251218
  Transmission Date: 20260117
  Serious: Yes (Death, Hospitalization)
  Sender: FDA-CTU
  Company Number: None

PATIENT
  Age: 64 Year
  Sex: Male
  Weight: 48.5 kg

DRUGS (2)
  1. CARBOPLATIN [Suspect]
     Active Substance: CARBOPLATIN
     Dates: end: 20201028
  2. PACLITAXEL [Suspect]
     Active Substance: PACLITAXEL
     Dates: end: 20201028

REACTIONS (9)
  - Weight decreased [None]
  - Oesophageal fistula [None]
  - Device dislocation [None]
  - Post procedural complication [None]
  - Pulmonary embolism [None]
  - Sinus tachycardia [None]
  - Hypoxia [None]
  - Hypoventilation [None]
  - Anastomotic complication [None]

NARRATIVE: CASE EVENT DATE: 20210223
